FAERS Safety Report 11394938 (Version 2)
Quarter: 2015Q3

REPORT INFORMATION
  Report Type: Spontaneous
  Country: AU (occurrence: AU)
  Receive Date: 20150819
  Receipt Date: 20150930
  Transmission Date: 20151125
  Serious: Yes (Hospitalization)
  Sender: FDA-Public Use
  Company Number: AU-TEVA-585843ISR

PATIENT
  Age: 90 Year
  Sex: Female

DRUGS (5)
  1. MADOPAR 125MG [Concomitant]
     Dates: start: 201104, end: 201309
  2. CYMBALTA [Suspect]
     Active Substance: DULOXETINE HYDROCHLORIDE
     Dosage: 30MG
     Dates: start: 201005, end: 201308
  3. LEVODOPA-BENSERAZIDE [Concomitant]
     Active Substance: BENSERAZIDE\LEVODOPA
  4. SOMAC [Concomitant]
     Active Substance: PANTOPRAZOLE SODIUM
  5. AZILECT [Suspect]
     Active Substance: RASAGILINE MESYLATE
     Route: 048
     Dates: start: 20130718, end: 20130722

REACTIONS (9)
  - Dysphagia [Unknown]
  - Cardiac failure congestive [Unknown]
  - Dyspnoea [Unknown]
  - Fall [Recovered/Resolved]
  - Aphasia [Unknown]
  - Dysphagia [Unknown]
  - Mobility decreased [Unknown]
  - Pulmonary oedema [Unknown]
  - Coma [Unknown]

NARRATIVE: CASE EVENT DATE: 20130722
